FAERS Safety Report 17120738 (Version 2)
Quarter: 2020Q2

REPORT INFORMATION
  Report Type: Spontaneous
  Country: US (occurrence: US)
  Receive Date: 20191206
  Receipt Date: 20200528
  Transmission Date: 20200713
  Serious: No
  Sender: FDA-Public Use
  Company Number: US-UCBSA-2017018476

PATIENT
  Age: 34 Year
  Sex: Female
  Weight: 114.29 kg

DRUGS (6)
  1. CIMZIA [Suspect]
     Active Substance: CERTOLIZUMAB PEGOL
     Indication: RHEUMATOID ARTHRITIS
     Dosage: INDUCTION DOSE
     Dates: start: 201611
  2. CIMZIA [Suspect]
     Active Substance: CERTOLIZUMAB PEGOL
     Dosage: 400 MG, EV 4 WEEKS
  3. ENBREL [Concomitant]
     Active Substance: ETANERCEPT
     Indication: RHEUMATOID ARTHRITIS
     Dosage: 50 MG, WEEKLY (QW)
     Dates: start: 201604, end: 201609
  4. INTEGRA [Concomitant]
     Active Substance: DIETARY SUPPLEMENT
     Indication: BLOOD IRON DECREASED
     Dosage: 1 DF, ONCE DAILY (QD)
     Dates: start: 2017
  5. TRINESSA [Concomitant]
     Active Substance: ETHINYL ESTRADIOL\NORGESTIMATE
     Indication: CONTRACEPTION
     Dosage: UNK
  6. PRENATAL VITAMINS [Concomitant]
     Active Substance: VITAMINS
     Indication: PREGNANCY
     Dosage: UNK UNK, ONCE DAILY (QD)
     Dates: start: 2016

REACTIONS (2)
  - Maternal exposure during breast feeding [Unknown]
  - Maternal exposure during pregnancy [Unknown]

NARRATIVE: CASE EVENT DATE: 201611
